FAERS Safety Report 24029771 (Version 1)
Quarter: 2024Q2

REPORT INFORMATION
  Report Type: Spontaneous
  Country: AU (occurrence: AU)
  Receive Date: 20240628
  Receipt Date: 20240628
  Transmission Date: 20240716
  Serious: Yes (Other)
  Sender: FDA-Public Use
  Company Number: AU-SUN PHARMACEUTICAL INDUSTRIES LTD-2024RR-454063

PATIENT
  Age: 43 Year
  Sex: Male

DRUGS (9)
  1. VENLAFAXINE [Suspect]
     Active Substance: VENLAFAXINE HYDROCHLORIDE
     Indication: Depressive symptom
     Dosage: 75 MILLIGRAM
     Route: 065
  2. VENLAFAXINE [Suspect]
     Active Substance: VENLAFAXINE HYDROCHLORIDE
     Dosage: 225 MILLIGRAM
     Route: 065
  3. MIRTAZAPINE [Suspect]
     Active Substance: MIRTAZAPINE
     Indication: Depressive symptom
     Dosage: UNK
     Route: 065
  4. OLANZAPINE [Suspect]
     Active Substance: OLANZAPINE
     Indication: Depressive symptom
     Dosage: UNK
     Route: 065
  5. AMITRIPTYLINE [Suspect]
     Active Substance: AMITRIPTYLINE
     Indication: Depressive symptom
     Dosage: 100 MILLIGRAM
     Route: 065
  6. LITHIUM [Suspect]
     Active Substance: LITHIUM
     Indication: Depressive symptom
     Dosage: UNK
     Route: 065
  7. METHYLPHENIDATE [Suspect]
     Active Substance: METHYLPHENIDATE
     Indication: Depressive symptom
     Dosage: UNK
     Route: 065
  8. CLOMIPRAMINE [Suspect]
     Active Substance: CLOMIPRAMINE
     Indication: Depressive symptom
     Dosage: UNK
     Route: 065
  9. LURASIDONE [Suspect]
     Active Substance: LURASIDONE
     Indication: Depressive symptom
     Dosage: UNK
     Route: 065

REACTIONS (4)
  - Drug ineffective [Unknown]
  - Therapeutic product effect incomplete [Unknown]
  - Hypomania [Unknown]
  - Akathisia [Unknown]
